FAERS Safety Report 4276421-7 (Version None)
Quarter: 2004Q1

REPORT INFORMATION
  Report Type: 
  Country: None (occurrence: None)
  Receive Date: 20040121
  Receipt Date: 20040121
  Transmission Date: 20041129
  Serious: Yes (Life-Threatening, Hospitalization)
  Sender: FDA-Public Use
  Company Number: None

PATIENT
  Age: 66 Year
  Sex: Male
  Weight: 106.0963 kg

DRUGS (3)
  1. REGULAR INSULIN [Suspect]
     Indication: DIABETES MELLITUS NON-INSULIN-DEPENDENT
     Dosage: SLIDING SCAL
     Dates: start: 20031210, end: 20031216
  2. ACARBOSE [Concomitant]
  3. ROSIGLITAZONE MALEATE [Concomitant]

REACTIONS (1)
  - HYPOGLYCAEMIA [None]
